FAERS Safety Report 8799158 (Version 1)
Quarter: 2012Q4

REPORT INFORMATION
  Report Type: Spontaneous
  Country: US (occurrence: None)
  Receive Date: 20120918
  Receipt Date: 20120918
  Transmission Date: 20130627
  Serious: Yes (Other)
  Sender: FDA-Public Use
  Company Number: None

PATIENT
  Sex: Male
  Weight: 105.24 kg

DRUGS (4)
  1. LEVOFLOXACIN [Suspect]
     Indication: SINUSITIS
     Route: 048
     Dates: start: 20120409, end: 20120410
  2. LOTREL [Concomitant]
  3. HCTZ [Concomitant]
  4. KCL [Concomitant]

REACTIONS (3)
  - Arthralgia [None]
  - Pain in extremity [None]
  - Musculoskeletal stiffness [None]
